FAERS Safety Report 25600497 (Version 1)
Quarter: 2025Q3

REPORT INFORMATION
  Report Type: Spontaneous
  Country: GB (occurrence: GB)
  Receive Date: 20250724
  Receipt Date: 20250724
  Transmission Date: 20251020
  Serious: Yes (Other)
  Sender: Kenvue
  Company Number: None

PATIENT

DRUGS (1)
  1. CETIRIZINE HYDROCHLORIDE [Suspect]
     Active Substance: CETIRIZINE HYDROCHLORIDE
     Indication: Seasonal allergy
     Dosage: UNK, ONCE A DAY
     Route: 065

REACTIONS (3)
  - Hallucination, visual [Recovered/Resolved]
  - Abnormal dreams [Recovered/Resolved]
  - Sedation [Recovered/Resolved]
